FAERS Safety Report 19317737 (Version 3)
Quarter: 2021Q3

REPORT INFORMATION
  Report Type: Spontaneous
  Country: US (occurrence: US)
  Receive Date: 20210527
  Receipt Date: 20210708
  Transmission Date: 20211014
  Serious: Yes (Death)
  Sender: FDA-Public Use
  Company Number: US-ROCHE-2838088

PATIENT
  Age: 71 Year
  Sex: Male

DRUGS (7)
  1. VALSARTAN. [Concomitant]
     Active Substance: VALSARTAN
  2. AMBIEN [Concomitant]
     Active Substance: ZOLPIDEM TARTRATE
  3. DILTIAZEM. [Concomitant]
     Active Substance: DILTIAZEM
  4. PREDNISONE. [Concomitant]
     Active Substance: PREDNISONE
  5. KLONOPIN [Suspect]
     Active Substance: CLONAZEPAM
     Indication: PRODUCT USED FOR UNKNOWN INDICATION
     Route: 048
  6. ESBRIET [Suspect]
     Active Substance: PIRFENIDONE
     Indication: LYMPHADENOPATHY
     Dosage: TAKE 1 TAB THREE TIMES DAILY X1 WEEK, THEN TAKE 2 TABLETS 3 TIMES DAILY X1 WEEK, THEN TAKE 3 TABLETS
     Route: 048
  7. GABAPENTINE [Concomitant]
     Active Substance: GABAPENTIN

REACTIONS (1)
  - Death [Fatal]

NARRATIVE: CASE EVENT DATE: 20210524
